FAERS Safety Report 8935665 (Version 1)
Quarter: 2012Q4

REPORT INFORMATION
  Report Type: 
  Country: GB (occurrence: US)
  Receive Date: 20121130
  Receipt Date: 20121130
  Transmission Date: 20130627
  Serious: Yes (Hospitalization)
  Sender: FDA-Public Use
  Company Number: GB-MPIJNJ-2012-08379

PATIENT
  Age: 66 Year
  Sex: Female
  Weight: 149.6 kg

DRUGS (6)
  1. VELCADE [Suspect]
     Indication: MULTIPLE MYELOMA
  2. BEVACIZUMAB [Suspect]
     Indication: MULTIPLE MYELOMA
     Dosage: 1097 mg, q3weeks
     Route: 042
     Dates: start: 20090105, end: 20090105
  3. ACYCLOVIR                          /00587301/ [Suspect]
     Indication: PRODUCT USED FOR UNKNOWN INDICATION
     Dosage: UNK
     Dates: end: 20090126
  4. LISINOPRIL [Concomitant]
     Indication: HYPERTENSION
  5. HYDROCHLOROTHIAZIDE [Concomitant]
     Indication: HYPERTENSION
  6. DIURETICS [Concomitant]
     Indication: PRODUCT USED FOR UNKNOWN INDICATION

REACTIONS (5)
  - Hypovolaemia [Unknown]
  - Dehydration [Unknown]
  - Diarrhoea [Unknown]
  - Orthostatic hypotension [Unknown]
  - Vertigo [Recovered/Resolved]
